FAERS Safety Report 10371120 (Version 1)
Quarter: 2014Q3

REPORT INFORMATION
  Report Type: Spontaneous
  Country: US (occurrence: US)
  Receive Date: 20140808
  Receipt Date: 20140808
  Transmission Date: 20150326
  Serious: No
  Sender: FDA-Public Use
  Company Number: US-BAYER-2014-117685

PATIENT
  Age: 44 Year
  Sex: Male

DRUGS (5)
  1. CENTRUM [Concomitant]
     Active Substance: VITAMINS
  2. LEVITRA [Suspect]
     Active Substance: VARDENAFIL HYDROCHLORIDE TRIHYDRATE
     Indication: ERECTILE DYSFUNCTION
     Dosage: 10 MG, BIW
     Route: 048
     Dates: start: 201308, end: 20140804
  3. IRON [Concomitant]
     Active Substance: IRON
  4. VITAMIN B12 [Concomitant]
     Active Substance: CYANOCOBALAMIN
  5. FISH OIL [Concomitant]
     Active Substance: FISH OIL

REACTIONS (5)
  - Spontaneous penile erection [None]
  - Wrong technique in drug usage process [None]
  - Drug ineffective [None]
  - Anxiety [None]
  - Mental disorder [None]

NARRATIVE: CASE EVENT DATE: 20140801
